FAERS Safety Report 15146015 (Version 2)
Quarter: 2018Q3

REPORT INFORMATION
  Report Type: Spontaneous
  Country: US (occurrence: US)
  Receive Date: 20180714
  Receipt Date: 20180803
  Transmission Date: 20181010
  Serious: No
  Sender: FDA-Public Use
  Company Number: US-JNJFOC-20180701951

PATIENT
  Age: 88 Year
  Sex: Female
  Weight: 45.36 kg

DRUGS (2)
  1. IMODIUM A?D [Suspect]
     Active Substance: LOPERAMIDE HYDROCHLORIDE
     Route: 048
  2. IMODIUM A?D [Suspect]
     Active Substance: LOPERAMIDE HYDROCHLORIDE
     Indication: DIARRHOEA
     Route: 048
     Dates: start: 20180627, end: 20180629

REACTIONS (1)
  - Constipation [Not Recovered/Not Resolved]

NARRATIVE: CASE EVENT DATE: 20180629
